FAERS Safety Report 10437607 (Version 1)
Quarter: 2014Q3

REPORT INFORMATION
  Report Type: Spontaneous
  Country: IN (occurrence: IN)
  Receive Date: 20140908
  Receipt Date: 20140908
  Transmission Date: 20150326
  Serious: Yes (Hospitalization)
  Sender: FDA-Public Use
  Company Number: IN-MYLAN-2014M1003439

PATIENT

DRUGS (3)
  1. ESCITALOPRAM [Concomitant]
     Active Substance: ESCITALOPRAM OXALATE
     Dosage: 10 MG, QD
     Route: 065
  2. OLANZAPINE. [Suspect]
     Active Substance: OLANZAPINE
     Indication: DEPRESSION
     Dosage: 5 MG, QD
     Route: 065
  3. ESCITALOPRAM [Concomitant]
     Active Substance: ESCITALOPRAM OXALATE
     Indication: DEPRESSION
     Dosage: 5 MG, QD
     Route: 065

REACTIONS (10)
  - Decreased appetite [None]
  - Muscle spasms [None]
  - Hyponatraemia [Recovered/Resolved]
  - Asthenia [None]
  - Lethargy [None]
  - Gait disturbance [None]
  - Disorientation [None]
  - Urinary retention [None]
  - Hyponatraemia [None]
  - Nausea [None]
